FAERS Safety Report 9738949 (Version 1)
Quarter: 2013Q4

REPORT INFORMATION
  Report Type: Report from Study
  Country: CL (occurrence: CL)
  Receive Date: 20131209
  Receipt Date: 20131209
  Transmission Date: 20140711
  Serious: Yes (Hospitalization)
  Sender: FDA-Public Use
  Company Number: PHHY2013CL140418

PATIENT
  Age: 74 Year
  Sex: Female

DRUGS (2)
  1. TAREG D [Suspect]
     Dosage: 0.5 DF (VALS 160 MG/ HCTZ 12.5 MG), UNK
     Dates: start: 1992
  2. TAREG D [Suspect]
     Dosage: 0.5 DF (VALS 160 MG/ HCTZ 12.5 MG), UNK

REACTIONS (5)
  - Deafness traumatic [Recovered/Resolved with Sequelae]
  - Head injury [Recovered/Resolved with Sequelae]
  - Road traffic accident [Unknown]
  - Cardiac disorder [Recovered/Resolved]
  - Wrong technique in drug usage process [Unknown]
